FAERS Safety Report 11973138 (Version 2)
Quarter: 2016Q1

REPORT INFORMATION
  Report Type: Report from Study
  Country: US (occurrence: US)
  Receive Date: 20160128
  Receipt Date: 20160212
  Transmission Date: 20160526
  Serious: Yes (Other)
  Sender: FDA-Public Use
  Company Number: US-ACTELION-A-US2016-130282

PATIENT
  Age: 67 Year
  Sex: Male

DRUGS (1)
  1. MACITENTAN [Suspect]
     Active Substance: MACITENTAN
     Indication: PULMONARY ARTERIAL HYPERTENSION
     Dosage: UNK
     Route: 048
     Dates: start: 20141226

REACTIONS (6)
  - Disease progression [Unknown]
  - Pulmonary arterial hypertension [Unknown]
  - Blood bilirubin increased [Unknown]
  - Weight decreased [Unknown]
  - Fluid retention [Unknown]
  - Oral pain [Unknown]

NARRATIVE: CASE EVENT DATE: 20150520
